FAERS Safety Report 19610264 (Version 3)
Quarter: 2021Q3

REPORT INFORMATION
  Report Type: Spontaneous
  Country: CA (occurrence: CA)
  Receive Date: 20210726
  Receipt Date: 20210907
  Transmission Date: 20211014
  Serious: Yes (Other)
  Sender: FDA-Public Use
  Company Number: CA-PFIZER INC-2021906233

PATIENT
  Age: 66 Year
  Sex: Female

DRUGS (9)
  1. INFLIXIMAB [Concomitant]
     Active Substance: INFLIXIMAB
     Indication: MELANOMA RECURRENT
     Dosage: 1 UNK (ONE DOSE)
  2. RITUXIMAB. [Concomitant]
     Active Substance: RITUXIMAB
     Indication: CHRONIC SINUSITIS
  3. RITUXIMAB. [Concomitant]
     Active Substance: RITUXIMAB
     Indication: VASCULITIS
  4. INFLIXIMAB [Concomitant]
     Active Substance: INFLIXIMAB
     Indication: VASCULITIS
  5. RITUXIMAB. [Concomitant]
     Active Substance: RITUXIMAB
     Indication: MELANOMA RECURRENT
     Dosage: UNK
  6. INFLIXIMAB [Concomitant]
     Active Substance: INFLIXIMAB
     Indication: CHRONIC SINUSITIS
  7. METHYLPREDNISOLONE SODIUM SUCCINATE. [Suspect]
     Active Substance: METHYLPREDNISOLONE SODIUM SUCCINATE
     Indication: VASCULITIS
     Dosage: UNK
     Route: 042
  8. METHYLPREDNISOLONE SODIUM SUCCINATE. [Suspect]
     Active Substance: METHYLPREDNISOLONE SODIUM SUCCINATE
     Indication: CHRONIC SINUSITIS
  9. METHYLPREDNISOLONE SODIUM SUCCINATE. [Suspect]
     Active Substance: METHYLPREDNISOLONE SODIUM SUCCINATE
     Indication: MELANOMA RECURRENT

REACTIONS (3)
  - Chronic kidney disease [Unknown]
  - Steroid diabetes [Unknown]
  - Off label use [Unknown]
